FAERS Safety Report 15275711 (Version 2)
Quarter: 2020Q4

REPORT INFORMATION
  Report Type: Spontaneous
  Country: US (occurrence: US)
  Receive Date: 20180814
  Receipt Date: 20201013
  Transmission Date: 20210113
  Serious: No
  Sender: FDA-Public Use
  Company Number: US-CELLTRION INC.-2018US021215

PATIENT

DRUGS (3)
  1. INFLECTRA [Suspect]
     Active Substance: INFLIXIMAB-DYYB
     Indication: PAIN
  2. INFLECTRA [Suspect]
     Active Substance: INFLIXIMAB-DYYB
     Indication: IMMUNOLOGY TEST
  3. INFLECTRA [Suspect]
     Active Substance: INFLIXIMAB-DYYB
     Indication: PSORIATIC ARTHROPATHY
     Dosage: 300MG EVERY 8 WEEKS AS NEEDED
     Route: 065
     Dates: start: 20180521, end: 20180521

REACTIONS (3)
  - Underdose [Unknown]
  - Product use issue [Unknown]
  - Product prescribing issue [Unknown]
